FAERS Safety Report 7622529 (Version 3)
Quarter: 2013Q4

REPORT INFORMATION
  Report Type: Spontaneous
  Country: US (occurrence: US)
  Receive Date: 20101008
  Receipt Date: 20131003
  Transmission Date: 20140711
  Serious: Yes (Hospitalization)
  Sender: FDA-Public Use
  Company Number: US-US-EMD SERONO, INC.-7001987

PATIENT
  Sex: Female

DRUGS (2)
  1. REBIF [Suspect]
     Indication: MULTIPLE SCLEROSIS
     Route: 058
     Dates: start: 20091206
  2. BYETTA [Concomitant]
     Indication: DIABETES MELLITUS

REACTIONS (9)
  - Uterine cancer [Recovered/Resolved]
  - Fallopian tube cancer [Unknown]
  - Ovarian neoplasm [Unknown]
  - Fluid retention [Not Recovered/Not Resolved]
  - Menstrual disorder [Unknown]
  - Constipation [Unknown]
  - Stress [Unknown]
  - Post procedural infection [Unknown]
  - Multiple sclerosis relapse [Recovered/Resolved]
